FAERS Safety Report 16498939 (Version 1)
Quarter: 2019Q2

REPORT INFORMATION
  Report Type: Spontaneous
  Country: US (occurrence: US)
  Receive Date: 20190630
  Receipt Date: 20190630
  Transmission Date: 20190711
  Serious: Yes (Hospitalization, Disabling, Other)
  Sender: FDA-Public Use
  Company Number: US-JNJFOC-20190624690

PATIENT
  Age: 61 Year
  Sex: Male

DRUGS (1)
  1. INVOKANA [Suspect]
     Active Substance: CANAGLIFLOZIN
     Indication: PRODUCT USE IN UNAPPROVED INDICATION
     Route: 048

REACTIONS (7)
  - Cellulitis [Recovering/Resolving]
  - Neuropathic arthropathy [Unknown]
  - Leg amputation [Unknown]
  - Gangrene [Recovering/Resolving]
  - Osteomyelitis [Unknown]
  - Skin ulcer [Unknown]
  - Joint injury [Unknown]

NARRATIVE: CASE EVENT DATE: 20141204
